FAERS Safety Report 5091452-5 (Version None)
Quarter: 2006Q3

REPORT INFORMATION
  Report Type: 
  Country: None (occurrence: None)
  Receive Date: 20060829
  Receipt Date: 20060620
  Transmission Date: 20061208
  Serious: Yes (Death, Hospitalization)
  Sender: FDA-Public Use
  Company Number: BE-BRISTOL-MYERS SQUIBB COMPANY-13417233

PATIENT
  Age: 51 Year
  Sex: Male

DRUGS (5)
  1. CISPLATIN [Suspect]
     Indication: GASTRIC CANCER
     Route: 041
     Dates: start: 20060404, end: 20060404
  2. FLUOROURACIL [Suspect]
     Indication: GASTRIC CANCER
     Route: 041
     Dates: start: 20060404, end: 20060409
  3. MOTILIUM [Concomitant]
     Indication: NAUSEA
     Route: 048
     Dates: start: 20060228
  4. NEXIUM [Concomitant]
     Indication: GASTRIC ULCER
     Route: 048
     Dates: start: 20060228
  5. DURAGESIC-100 [Concomitant]
     Indication: PAIN
     Route: 003
     Dates: start: 20060228

REACTIONS (2)
  - CACHEXIA [None]
  - MALIGNANT NEOPLASM PROGRESSION [None]
